FAERS Safety Report 12731076 (Version 1)
Quarter: 2016Q3

REPORT INFORMATION
  Report Type: Spontaneous
  Country: GB (occurrence: GB)
  Receive Date: 20160912
  Receipt Date: 20160912
  Transmission Date: 20161109
  Serious: Yes (Other)
  Sender: FDA-Public Use
  Company Number: GB-DEXPHARM-20161925

PATIENT

DRUGS (9)
  1. ASPIRIN. [Concomitant]
     Active Substance: ASPIRIN
     Dosage: CURRENTLY TAKING, LONG TERM MEDICATION
  2. OMEPRAZOLE. [Suspect]
     Active Substance: OMEPRAZOLE
  3. COLECALCIFEROL [Concomitant]
     Active Substance: CHOLECALCIFEROL
     Dosage: CURRENTLY TAKING, LONG TERM MEDICATION
  4. EPOETIN ALFA [Concomitant]
     Active Substance: ERYTHROPOIETIN
     Dosage: CURRENTLY TAKING, LONG TERM MEDICATION
  5. IBANDRONIC ACID [Concomitant]
     Active Substance: IBANDRONIC ACID
     Dosage: CURRENTLY TAKING, LONG TERM MEDICATION
  6. OXYCODONE [Concomitant]
     Active Substance: OXYCODONE
     Dosage: CURRENTLY TAKING, LONG TERM MEDICATION
  7. QUININE [Concomitant]
     Active Substance: QUININE
     Dosage: CURRENTLY TAKING, LONG TERM MEDICATION
  8. SIMVASTATIN. [Suspect]
     Active Substance: SIMVASTATIN
  9. ALFUZOSIN [Concomitant]
     Active Substance: ALFUZOSIN
     Dosage: CURRENTLY TAKING, LONG TERM MEDICATION

REACTIONS (1)
  - Systemic lupus erythematosus [Unknown]
